FAERS Safety Report 6569911-5 (Version None)
Quarter: 2010Q1

REPORT INFORMATION
  Report Type: 
  Country: None (occurrence: None)
  Receive Date: 20100204
  Receipt Date: 20100129
  Transmission Date: 20100710
  Serious: Yes (Hospitalization)
  Sender: FDA-Public Use
  Company Number: PHHO2010FR01727

PATIENT
  Sex: Male

DRUGS (2)
  1. CERTICAN [Suspect]
     Indication: LIVER TRANSPLANT
  2. TACROLIMUS [Suspect]
     Indication: LIVER TRANSPLANT

REACTIONS (3)
  - HEPATITIS C [None]
  - LIVER FUNCTION TEST ABNORMAL [None]
  - LIVER TRANSPLANT REJECTION [None]
